FAERS Safety Report 5334064-8 (Version None)
Quarter: 2007Q2

REPORT INFORMATION
  Report Type: 
  Country: None (occurrence: None)
  Receive Date: 20070524
  Receipt Date: 20070515
  Transmission Date: 20071010
  Serious: Yes (Other)
  Sender: FDA-Public Use
  Company Number: SE-PFIZER INC-2007040653

PATIENT
  Sex: Female

DRUGS (1)
  1. LYRICA [Suspect]
     Indication: NERVE INJURY
     Route: 048

REACTIONS (4)
  - DRY EYE [None]
  - MEMORY IMPAIRMENT [None]
  - PHOTOPSIA [None]
  - VITREOUS DETACHMENT [None]
